FAERS Safety Report 7773426-6 (Version None)
Quarter: 2011Q3

REPORT INFORMATION
  Report Type: 
  Country: None (occurrence: None)
  Receive Date: 20110922
  Receipt Date: 20110913
  Transmission Date: 20111222
  Serious: Yes (Other)
  Sender: FDA-Public Use
  Company Number: US-ASTRAZENECA-2011SE34154

PATIENT
  Sex: Female

DRUGS (3)
  1. PRILOSEC [Suspect]
     Route: 048
  2. TENORMIN [Suspect]
     Route: 065
  3. NEXIUM [Suspect]
     Route: 048

REACTIONS (26)
  - MITRAL VALVE DISEASE [None]
  - VERTIGO [None]
  - HORMONE LEVEL ABNORMAL [None]
  - RESTLESS LEGS SYNDROME [None]
  - AMNESIA [None]
  - DRUG DOSE OMISSION [None]
  - BENIGN NEOPLASM OF SKIN [None]
  - VARICOSE VEIN [None]
  - HYPERLIPIDAEMIA [None]
  - CAROTID ARTERY STENOSIS [None]
  - CHRONIC SINUSITIS [None]
  - INTERVERTEBRAL DISC DEGENERATION [None]
  - CARPAL TUNNEL SYNDROME [None]
  - MIGRAINE [None]
  - ESSENTIAL HYPERTENSION [None]
  - IRRITABLE BOWEL SYNDROME [None]
  - EXOSTOSIS [None]
  - FEELING ABNORMAL [None]
  - DRUG INEFFECTIVE [None]
  - CAROTID ARTERY OCCLUSION [None]
  - DYSKINESIA [None]
  - MITRAL VALVE PROLAPSE [None]
  - ILL-DEFINED DISORDER [None]
  - BURSITIS [None]
  - PAIN IN EXTREMITY [None]
  - VOMITING [None]
